FAERS Safety Report 19617730 (Version 2)
Quarter: 2021Q3

REPORT INFORMATION
  Report Type: Report from Study
  Country: US (occurrence: US)
  Receive Date: 20210727
  Receipt Date: 20210827
  Transmission Date: 20211014
  Serious: Yes (Other)
  Sender: FDA-Public Use
  Company Number: US-SEATTLE GENETICS-2020SGN02282

PATIENT
  Sex: Female
  Weight: 58.5 kg

DRUGS (19)
  1. OXYCODONE [Concomitant]
     Active Substance: OXYCODONE
     Indication: PAIN MANAGEMENT
     Dosage: 10 MG, Q4H?6H
  2. CITALOPRAM [Concomitant]
     Active Substance: CITALOPRAM HYDROBROMIDE
  3. TUCATINIB [Suspect]
     Active Substance: TUCATINIB
     Dosage: 250 MG, BID
  4. LASIX [Concomitant]
     Active Substance: FUROSEMIDE
     Indication: ASCITES
  5. LOMOTIL [LOPERAMIDE HYDROCHLORIDE] [Concomitant]
     Active Substance: LOPERAMIDE HYDROCHLORIDE
  6. CAPECITABINE. [Suspect]
     Active Substance: CAPECITABINE
     Indication: BREAST CANCER METASTATIC
     Dosage: 500 MG, 2 WEEKS ON 1 WEEK OFF
     Dates: start: 20210517
  7. LASIX [Concomitant]
     Active Substance: FUROSEMIDE
     Indication: OEDEMA PERIPHERAL
  8. TRIAMCINOLONE [Concomitant]
     Active Substance: TRIAMCINOLONE
     Indication: RASH
  9. ZOLPIDEM [Concomitant]
     Active Substance: ZOLPIDEM TARTRATE
  10. TUCATINIB [Suspect]
     Active Substance: TUCATINIB
     Dosage: 50 MG, UNK
  11. LIDOCAINE PRILOCAINE BIOGARAN [Concomitant]
  12. TUCATINIB [Suspect]
     Active Substance: TUCATINIB
     Indication: BREAST CANCER METASTATIC
     Dosage: 100 MG, QD
     Dates: start: 20210504
  13. HERCEPTIN [Suspect]
     Active Substance: TRASTUZUMAB
     Indication: BREAST CANCER METASTATIC
     Dosage: 6 MG/KG, Q3WEEKS
     Dates: start: 20210517
  14. CAPECITABINE. [Suspect]
     Active Substance: CAPECITABINE
     Dosage: UNK
  15. SPIRONOLACTONE. [Concomitant]
     Active Substance: SPIRONOLACTONE
     Indication: OEDEMA PERIPHERAL
  16. GABAPENTIN. [Concomitant]
     Active Substance: GABAPENTIN
  17. SUDOGEST [Concomitant]
     Active Substance: PSEUDOEPHEDRINE HYDROCHLORIDE
  18. TUCATINIB [Suspect]
     Active Substance: TUCATINIB
     Dosage: 150 MG, QD
     Dates: start: 20210706
  19. SPIRONOLACTONE. [Concomitant]
     Active Substance: SPIRONOLACTONE
     Indication: ASCITES

REACTIONS (41)
  - Pancytopenia [Unknown]
  - Cerebral disorder [Unknown]
  - Dizziness [Unknown]
  - Pulmonary pain [Unknown]
  - Feeling abnormal [Unknown]
  - Weight increased [Unknown]
  - Constipation [Unknown]
  - Dehydration [Unknown]
  - Nausea [Unknown]
  - Vomiting [Unknown]
  - Memory impairment [Unknown]
  - Abdominal discomfort [Unknown]
  - Back pain [Unknown]
  - Cognitive disorder [Unknown]
  - Asthenia [Unknown]
  - White blood cell count decreased [Unknown]
  - Adverse drug reaction [Unknown]
  - Platelet count decreased [Unknown]
  - Diarrhoea [Unknown]
  - Inappropriate schedule of product administration [Unknown]
  - Illness [Unknown]
  - Hypoacusis [Unknown]
  - Decreased appetite [Unknown]
  - Weight decreased [Unknown]
  - Ascites [Unknown]
  - Hepatic function abnormal [Unknown]
  - Oedema peripheral [Unknown]
  - Nervousness [Unknown]
  - Abdominal pain [Unknown]
  - Rash [Unknown]
  - Product dose omission issue [Unknown]
  - Confusional state [Unknown]
  - Vertigo [Unknown]
  - Abdominal distension [Unknown]
  - Renal impairment [Unknown]
  - Vaccination complication [Unknown]
  - Pruritus [Unknown]
  - Skin ulcer [Unknown]
  - Pain [Unknown]
  - Arthralgia [Unknown]
  - Expired product administered [Unknown]
